FAERS Safety Report 9165504 (Version 4)
Quarter: 2013Q4

REPORT INFORMATION
  Report Type: Spontaneous
  Country: CA (occurrence: CA)
  Receive Date: 20130315
  Receipt Date: 20131004
  Transmission Date: 20140711
  Serious: Yes (Hospitalization, Other)
  Sender: FDA-Public Use
  Company Number: CA-AMGEN-CANSP2013016460

PATIENT
  Age: 57 Year
  Sex: Female

DRUGS (19)
  1. ENBREL [Suspect]
     Indication: ANKYLOSING SPONDYLITIS
     Dosage: 50 MG, UNK
     Route: 065
     Dates: start: 20110503
  2. ACLASTA [Concomitant]
     Dosage: UNK, ONCE A YEAR
     Dates: start: 20130205
  3. METHADON [Concomitant]
     Dosage: 1 MG, TID
  4. MEDROXYPROGESTERONE [Concomitant]
     Dosage: 2.5 MG, ONCE EVERY OTHER DAY.
  5. CES [Concomitant]
     Dosage: 0.625 MG, ONCE EVERY OTHER DAY
  6. VITAMIN B 12 [Concomitant]
     Dosage: 1200 MUG, QD
  7. OXAZEPAM [Concomitant]
     Dosage: 60 MG, EVERY BEDTIME
  8. SYNTHROID [Concomitant]
     Dosage: 0.1 MG, QD
  9. NEXIUM                             /01479302/ [Concomitant]
     Dosage: 80 MG, QD
  10. D-TABS [Concomitant]
     Dosage: 10000 IU, QWK
  11. TYLENOL                            /00020001/ [Concomitant]
     Dosage: 500 MG,PRN
  12. QUININE-ODAN [Concomitant]
     Dosage: 300 MG, AT BEDTIME
  13. SOLUCAL [Concomitant]
     Dosage: 25 ML 1/MORNING.
  14. OSTEOCIT-D [Concomitant]
     Dosage: UNK
  15. PRISTIQ [Concomitant]
     Dosage: 50 MG, QD
  16. SENNOSIDES A+B [Concomitant]
     Dosage: 12 MG 1 TAB EVERY MORNING AND 2 TABS AT BEDTIME
  17. CYANOCOBALAMINE [Concomitant]
     Dosage: UNK
  18. PANTOPRAZOLE [Concomitant]
     Dosage: UNK
  19. PREMARIN [Concomitant]
     Dosage: UNK

REACTIONS (9)
  - Perforated ulcer [Recovering/Resolving]
  - Haemoglobin decreased [Unknown]
  - Gastric ulcer haemorrhage [Recovering/Resolving]
  - Depression [Not Recovered/Not Resolved]
  - Malaise [Not Recovered/Not Resolved]
  - Decreased appetite [Not Recovered/Not Resolved]
  - Abdominal distension [Not Recovered/Not Resolved]
  - Fatigue [Not Recovered/Not Resolved]
  - Lacrimation increased [Not Recovered/Not Resolved]
